FAERS Safety Report 15905028 (Version 7)
Quarter: 2024Q4

REPORT INFORMATION
  Report Type: Report from Study
  Country: IT (occurrence: IT)
  Receive Date: 20190204
  Receipt Date: 20241125
  Transmission Date: 20250114
  Serious: Yes (Hospitalization)
  Sender: ACCORD
  Company Number: None

PATIENT
  Age: 58 Year
  Sex: Male

DRUGS (11)
  1. AMLODIPINE [Suspect]
     Active Substance: AMLODIPINE BESYLATE
     Indication: Product used for unknown indication
     Dosage: 14 DF,TOTAL, OVERDOSE INTENTIONAL
     Route: 048
     Dates: start: 20180118, end: 20180118
  2. ATORVASTATIN [Suspect]
     Active Substance: ATORVASTATIN
     Indication: Product used for unknown indication
     Dosage: 50 DF,TOTAL, OVERDOSE INTENTIONAL
     Route: 048
     Dates: start: 20180118, end: 20180118
  3. BISOPROLOL [Suspect]
     Active Substance: BISOPROLOL
     Indication: Product used for unknown indication
     Dosage: 28 DF,TOTAL, OVERDOSE INTENTIONAL
     Route: 048
     Dates: start: 20180118, end: 20180118
  4. HYDROCHLOROTHIAZIDE\RAMIPRIL [Suspect]
     Active Substance: HYDROCHLOROTHIAZIDE\RAMIPRIL
     Indication: Product used for unknown indication
     Dosage: OVERDOSE, 64 DF TOTAL
     Route: 048
     Dates: start: 20180118, end: 20180118
  5. HYDROCHLOROTHIAZIDE\OLMESARTAN MEDOXOMIL [Suspect]
     Active Substance: HYDROCHLOROTHIAZIDE\OLMESARTAN MEDOXOMIL
     Indication: Product used for unknown indication
     Dosage: 64 DF, TOTAL, OVERDOSE INTENTIONAL
     Route: 048
     Dates: start: 20180118, end: 20180118
  6. ELIQUIS [Suspect]
     Active Substance: APIXABAN
     Indication: Product used for unknown indication
     Dosage: STRENGTH: 5MG, 60 DF,TOTAL, OVERDOSE INTENTIONAL
     Route: 048
     Dates: start: 20180118, end: 20180118
  7. TRIAZOLAM [Suspect]
     Active Substance: TRIAZOLAM
     Indication: Product used for unknown indication
     Dosage: 20 DF,TOTAL, OVERDOSE INTENTIONAL
     Route: 048
     Dates: start: 20180118, end: 20180118
  8. PALEXIA [Suspect]
     Active Substance: TAPENTADOL HYDROCHLORIDE
     Indication: Product used for unknown indication
     Dosage: STRENGTH: 100MG, 80 DF,TOTAL,OVERDOSE INTENTIONAL
     Route: 048
     Dates: start: 20180118, end: 20180118
  9. AMIODARONE [Suspect]
     Active Substance: AMIODARONE
     Indication: Product used for unknown indication
     Dosage: 20 DF,TOTAL, OVERDOSE INTENTIONAL
     Route: 048
     Dates: start: 20180118, end: 20180118
  10. TAMSULOSIN [Concomitant]
     Active Substance: TAMSULOSIN
     Indication: Benign prostatic hyperplasia
     Route: 048
  11. HYDROCHLOROTHIAZIDE\OLMESARTAN MEDOXOMIL [Suspect]
     Active Substance: HYDROCHLOROTHIAZIDE\OLMESARTAN MEDOXOMIL
     Indication: Product used for unknown indication
     Dosage: 64 DF, TOTAL
     Route: 048
     Dates: start: 20180118, end: 20180118

REACTIONS (3)
  - Urinary incontinence [Recovering/Resolving]
  - Confusional state [Recovering/Resolving]
  - Drug abuse [Recovering/Resolving]

NARRATIVE: CASE EVENT DATE: 20180118
